FAERS Safety Report 19608851 (Version 1)
Quarter: 2021Q3

REPORT INFORMATION
  Report Type: Spontaneous
  Country: US (occurrence: US)
  Receive Date: 20210722
  Receipt Date: 20210722
  Transmission Date: 20211014
  Serious: Yes (Hospitalization)
  Sender: FDA-Public Use
  Company Number: None

PATIENT
  Age: 60 Year
  Sex: Female

DRUGS (6)
  1. TOBRAMYCIN 300MG/5ML TOBI GEQ [Suspect]
     Active Substance: TOBRAMYCIN
     Indication: ASTHMA
     Route: 055
     Dates: start: 20210622
  2. CYCLOBENZAPR [Concomitant]
     Active Substance: CYCLOBENZAPRINE
  3. GABAPENTIN. [Concomitant]
     Active Substance: GABAPENTIN
  4. SULFASALAZINE DELAYED?RELEASE [Concomitant]
     Active Substance: SULFASALAZINE
  5. MELOXICAM. [Concomitant]
     Active Substance: MELOXICAM
  6. COSENTYX [Suspect]
     Active Substance: SECUKINUMAB
     Indication: ANKYLOSING SPONDYLITIS
     Dosage: ?          OTHER FREQUENCY:Q4WK;?
     Route: 058

REACTIONS (2)
  - Dysphonia [None]
  - Pneumonia bacterial [None]

NARRATIVE: CASE EVENT DATE: 20210709
